FAERS Safety Report 7189994-1 (Version None)
Quarter: 2010Q4

REPORT INFORMATION
  Report Type: 
  Country: None (occurrence: None)
  Receive Date: 20101223
  Receipt Date: 20101208
  Transmission Date: 20110411
  Serious: Yes (Other)
  Sender: FDA-Public Use
  Company Number: US-BAYER-2010-004997

PATIENT
  Age: 61 Year
  Sex: Male

DRUGS (2)
  1. CIPRO [Suspect]
  2. AVELOX [Suspect]

REACTIONS (1)
  - TENDON RUPTURE [None]
